FAERS Safety Report 24865201 (Version 3)
Quarter: 2025Q1

REPORT INFORMATION
  Report Type: Spontaneous
  Country: US (occurrence: US)
  Receive Date: 20250121
  Receipt Date: 20250217
  Transmission Date: 20250409
  Serious: Yes (Hospitalization)
  Sender: AVERITAS
  Company Number: US-GRUNENTHAL-2025-101079

PATIENT
  Age: 82 Year
  Sex: Female

DRUGS (4)
  1. QUTENZA [Suspect]
     Active Substance: CAPSAICIN
     Indication: Neuropathy peripheral
     Route: 061
     Dates: start: 20250115, end: 20250115
  2. QUTENZA [Suspect]
     Active Substance: CAPSAICIN
     Route: 061
  3. QUTENZA [Suspect]
     Active Substance: CAPSAICIN
     Route: 061
  4. QUTENZA [Suspect]
     Active Substance: CAPSAICIN
     Route: 061

REACTIONS (2)
  - Dizziness [Unknown]
  - Nausea [Unknown]

NARRATIVE: CASE EVENT DATE: 20250115
